FAERS Safety Report 16196071 (Version 1)
Quarter: 2019Q2

REPORT INFORMATION
  Report Type: Report from Study
  Country: US (occurrence: US)
  Receive Date: 20190415
  Receipt Date: 20190415
  Transmission Date: 20190711
  Serious: Yes (Hospitalization)
  Sender: FDA-Public Use
  Company Number: US-ROCHE-2298252

PATIENT
  Age: 39 Year
  Sex: Female

DRUGS (3)
  1. OCREVUS [Suspect]
     Active Substance: OCRELIZUMAB
     Route: 065
  2. OCREVUS [Suspect]
     Active Substance: OCRELIZUMAB
     Indication: RELAPSING MULTIPLE SCLEROSIS
     Dosage: ONGOING:NO
     Route: 065
     Dates: start: 20170810
  3. OCREVUS [Suspect]
     Active Substance: OCRELIZUMAB
     Dosage: 13/JUL/2018
     Route: 065
     Dates: start: 20180723

REACTIONS (5)
  - Arthropod bite [Recovered/Resolved]
  - Oral herpes [Unknown]
  - Peripheral swelling [Unknown]
  - Flushing [Recovered/Resolved]
  - Gait disturbance [Unknown]

NARRATIVE: CASE EVENT DATE: 20170810
